FAERS Safety Report 23222173 (Version 6)
Quarter: 2024Q1

REPORT INFORMATION
  Report Type: Spontaneous
  Country: US (occurrence: US)
  Receive Date: 20231123
  Receipt Date: 20240228
  Transmission Date: 20240409
  Serious: No
  Sender: FDA-Public Use
  Company Number: US-PFIZER INC-PV202300187188

PATIENT
  Age: 22 Year
  Sex: Male
  Weight: 52.16 kg

DRUGS (5)
  1. GENOTROPIN [Suspect]
     Active Substance: SOMATROPIN
     Indication: Growth hormone deficiency
     Dosage: 12.6 MG
  2. GENOTROPIN [Suspect]
     Active Substance: SOMATROPIN
     Dosage: 7 DAYS A WEEK
  3. GENOTROPIN [Suspect]
     Active Substance: SOMATROPIN
     Dosage: 0.6 MG, DAILY
     Dates: start: 2003
  4. DESMOPRESSIN [Concomitant]
     Active Substance: DESMOPRESSIN
     Indication: Diabetes insipidus
     Dosage: 0.1 MG, 1X/DAY
  5. TOPAMAX [Concomitant]
     Active Substance: TOPIRAMATE
     Indication: Epilepsy
     Dosage: 125 MG, 2X/DAY

REACTIONS (8)
  - Drug dose omission by device [Unknown]
  - Device failure [Unknown]
  - Device breakage [Unknown]
  - Device malfunction [Recovered/Resolved]
  - Device information output issue [Unknown]
  - Device power source issue [Unknown]
  - Device use issue [Unknown]
  - Wrong technique in device usage process [Unknown]
